FAERS Safety Report 25620221 (Version 1)
Quarter: 2025Q3

REPORT INFORMATION
  Report Type: Spontaneous
  Country: EU (occurrence: EU)
  Receive Date: 20250730
  Receipt Date: 20250730
  Transmission Date: 20251020
  Serious: Yes (Life-Threatening, Hospitalization)
  Sender: ACCORD
  Company Number: None

PATIENT
  Age: 60 Year
  Sex: Male
  Weight: 70 kg

DRUGS (11)
  1. LISINOPRIL [Suspect]
     Active Substance: LISINOPRIL
     Indication: Angina pectoris
     Dosage: STRENGTH: 10 MG, 1 PER DAY 1 PIECE
     Dates: start: 20220104, end: 20250520
  2. NAPROXEN [Suspect]
     Active Substance: NAPROXEN
     Indication: Arthralgia
     Dosage: STRENGTH: 500 MG, 2 PER DAY 500MG
     Dates: start: 20250512, end: 20250520
  3. FLUCLOXACILLIN [Suspect]
     Active Substance: FLUCLOXACILLIN
     Indication: Staphylococcal bacteraemia
     Dosage: STRENGTH: 120 MG/ML, 6000 MG/D
     Dates: start: 20250503, end: 20250506
  4. PANTOPRAZOLE [Suspect]
     Active Substance: PANTOPRAZOLE
     Indication: Gastrointestinal disorder
     Dosage: STRENGTH: 20 MG, 1 PER DAY 1 PIECE
     Dates: start: 20250514, end: 20250515
  5. ASPIRIN [Concomitant]
     Active Substance: ASPIRIN
  6. SIMVASTATIN [Concomitant]
     Active Substance: SIMVASTATIN
  7. QUETIAPINE [Concomitant]
     Active Substance: QUETIAPINE
  8. OLANZAPINE [Concomitant]
     Active Substance: OLANZAPINE
  9. METOPROLOL [Concomitant]
     Active Substance: METOPROLOL
  10. FLUCLOXACILLIN [Suspect]
     Active Substance: FLUCLOXACILLIN
     Indication: Staphylococcal bacteraemia
     Dosage: STRENGTH: 120 MG/ML, 1200 MG/D
     Dates: start: 20250507, end: 20250513
  11. FLUCLOXACILLIN [Suspect]
     Active Substance: FLUCLOXACILLIN
     Indication: Staphylococcal bacteraemia
     Dosage: STRENGTH: 120 MG/ML, 6000 MG/D
     Dates: start: 20250514, end: 20250515

REACTIONS (2)
  - Cutaneous vasculitis [Recovered/Resolved]
  - Angioedema [Recovered/Resolved]

NARRATIVE: CASE EVENT DATE: 20250515
